FAERS Safety Report 4946477-4 (Version None)
Quarter: 2006Q1

REPORT INFORMATION
  Report Type: 
  Country: None (occurrence: None)
  Receive Date: 20060313
  Receipt Date: 20060303
  Transmission Date: 20060701
  Serious: Yes (Other)
  Sender: FDA-Public Use
  Company Number: 2006-03-0141

PATIENT
  Age: 42 Year
  Sex: Female

DRUGS (2)
  1. CELESTONE [Suspect]
     Indication: RADICULAR PAIN
     Dosage: 6MG
  2. MARCAINE [Suspect]
     Indication: RADICULAR PAIN
     Dosage: 0.5%/1CC

REACTIONS (7)
  - ASTHENIA [None]
  - INJECTION SITE PUSTULE [None]
  - INJECTION SITE SWELLING [None]
  - MICTURITION URGENCY [None]
  - MYELITIS TRANSVERSE [None]
  - PARAESTHESIA [None]
  - PROCEDURAL COMPLICATION [None]
